FAERS Safety Report 15067337 (Version 1)
Quarter: 2018Q2

REPORT INFORMATION
  Report Type: Spontaneous
  Country: US (occurrence: US)
  Receive Date: 20180626
  Receipt Date: 20180626
  Transmission Date: 20180711
  Serious: Yes (Hospitalization)
  Sender: FDA-Public Use
  Company Number: US-EPIC PHARMA LLC-2018EPC00310

PATIENT
  Age: 50 Year
  Sex: Female

DRUGS (1)
  1. METHADONE HYDROCHLORIDE. [Suspect]
     Active Substance: METHADONE HYDROCHLORIDE
     Dosage: UNK
     Route: 065

REACTIONS (2)
  - Toxic leukoencephalopathy [Not Recovered/Not Resolved]
  - Overdose [Recovered/Resolved]
